FAERS Safety Report 13985502 (Version 1)
Quarter: 2017Q3

REPORT INFORMATION
  Report Type: Spontaneous
  Country: US (occurrence: US)
  Receive Date: 20170918
  Receipt Date: 20170918
  Transmission Date: 20171128
  Serious: Yes (Disabling)
  Sender: FDA-Public Use
  Company Number: None

PATIENT
  Age: 52 Year
  Sex: Female
  Weight: 98.4 kg

DRUGS (1)
  1. IOPAMIDOL [Suspect]
     Active Substance: IOPAMIDOL
     Indication: ABDOMINAL PAIN
     Dosage: OTHER FREQUENCY:ONCE;OTHER ROUTE:PERIPHERAL?
     Dates: start: 20170913, end: 20170913

REACTIONS (8)
  - Feeling abnormal [None]
  - Pulse absent [None]
  - Gait disturbance [None]
  - Hyperhidrosis [None]
  - Respiratory arrest [None]
  - Contrast media reaction [None]
  - Tremor [None]
  - Foaming at mouth [None]

NARRATIVE: CASE EVENT DATE: 20170913
